FAERS Safety Report 7294171-X (Version None)
Quarter: 2011Q1

REPORT INFORMATION
  Report Type: 
  Country: None (occurrence: None)
  Receive Date: 20110215
  Receipt Date: 20110210
  Transmission Date: 20110831
  Serious: Yes (Other)
  Sender: FDA-Public Use
  Company Number: JP-PFIZER INC-2011002164

PATIENT
  Age: 50 Year
  Sex: Female

DRUGS (6)
  1. ZITHROMAX [Concomitant]
  2. MYCOBUTIN [Suspect]
     Indication: MYCOBACTERIUM AVIUM COMPLEX INFECTION
     Dosage: 300 MG, UNK
     Route: 048
     Dates: start: 20101217, end: 20101228
  3. SITAFLOXACIN [Concomitant]
  4. MICARDIS [Concomitant]
  5. EBUTOL [Concomitant]
  6. AMLODIPINE [Concomitant]

REACTIONS (2)
  - LIVER FUNCTION TEST ABNORMAL [None]
  - THALAMUS HAEMORRHAGE [None]
